FAERS Safety Report 24226557 (Version 1)
Quarter: 2024Q3

REPORT INFORMATION
  Report Type: Spontaneous
  Country: CA (occurrence: CA)
  Receive Date: 20240820
  Receipt Date: 20240820
  Transmission Date: 20241017
  Serious: Yes (Hospitalization, Other)
  Sender: AUROBINDO
  Company Number: CA-AUROBINDO-AUR-APL-2024-040708

PATIENT
  Age: 18 Year
  Sex: Female

DRUGS (2)
  1. FLUOXETINE [Suspect]
     Active Substance: FLUOXETINE HYDROCHLORIDE
     Indication: Depression
     Dosage: 80 MILLIGRAM, ONCE A DAY (1 EVERY 1 DAYS)
     Route: 048
  2. FLUOXETINE [Suspect]
     Active Substance: FLUOXETINE HYDROCHLORIDE
     Indication: Depression
     Dosage: 20 MILLIGRAM, ONCE A DAY (1 EVERY 1 DAYS)
     Route: 065

REACTIONS (7)
  - Agitation [Recovered/Resolved]
  - Anxiety [Recovered/Resolved]
  - Injury [Recovered/Resolved]
  - Intentional self-injury [Recovered/Resolved]
  - Panic attack [Recovered/Resolved]
  - Scar [Recovered/Resolved]
  - Intentional overdose [Recovered/Resolved]
